FAERS Safety Report 16878366 (Version 3)
Quarter: 2019Q4

REPORT INFORMATION
  Report Type: Report from Study
  Country: US (occurrence: US)
  Receive Date: 20191002
  Receipt Date: 20191031
  Transmission Date: 20200122
  Serious: Yes (Hospitalization)
  Sender: FDA-Public Use
  Company Number: US-ALEXION PHARMACEUTICALS INC.-A201914707

PATIENT
  Sex: Female

DRUGS (1)
  1. STRENSIQ [Suspect]
     Active Substance: ASFOTASE ALFA
     Indication: PRODUCT USED FOR UNKNOWN INDICATION
     Dosage: UNK
     Route: 065

REACTIONS (10)
  - Spinal column injury [Unknown]
  - Concussion [Unknown]
  - Road traffic accident [Unknown]
  - Headache [Unknown]
  - Skin reaction [Unknown]
  - Depressed mood [Unknown]
  - Anger [Unknown]
  - Nausea [Unknown]
  - Dizziness [Unknown]
  - Joint lock [Unknown]

NARRATIVE: CASE EVENT DATE: 201909
